FAERS Safety Report 6938191-0 (Version None)
Quarter: 2010Q3

REPORT INFORMATION
  Report Type: 
  Country: None (occurrence: None)
  Receive Date: 20100824
  Receipt Date: 20100812
  Transmission Date: 20110219
  Serious: No
  Sender: FDA-Public Use
  Company Number: US-EISAI INC.-E3810-03977-SPO-US

PATIENT
  Sex: Female
  Weight: 60 kg

DRUGS (4)
  1. ACIPHEX [Suspect]
     Route: 048
     Dates: start: 20100622, end: 20100721
  2. HORMONE REPLACEMENT THERAPY [Concomitant]
     Dosage: UNKNOWN
     Route: 065
  3. VITAMIN D3 [Concomitant]
     Dosage: UNKNOWN
  4. CALCIUM [Concomitant]
     Dosage: UNKNOWN
     Route: 065

REACTIONS (1)
  - URINARY RETENTION [None]
